FAERS Safety Report 11171081 (Version 1)
Quarter: 2015Q2

REPORT INFORMATION
  Report Type: Spontaneous
  Country: CN (occurrence: CN)
  Receive Date: 20150608
  Receipt Date: 20150608
  Transmission Date: 20150821
  Serious: Yes (Hospitalization)
  Sender: FDA-Public Use
  Company Number: CN-MYLANLABS-2015M1018436

PATIENT

DRUGS (3)
  1. METHYLPREDNISOLONE. [Concomitant]
     Active Substance: METHYLPREDNISOLONE
     Indication: DERMATITIS BULLOUS
     Dosage: 40MG DAILY INITIATED ON DAY 15
     Route: 065
  2. CEFOPERAZONE [Suspect]
     Active Substance: CEFOPERAZONE
     Indication: UPPER RESPIRATORY TRACT INFECTION
     Route: 065
  3. VANCOMYCIN [Suspect]
     Active Substance: VANCOMYCIN
     Indication: STAPHYLOCOCCAL INFECTION
     Dosage: INITIATED ON DAY 11
     Route: 065

REACTIONS (2)
  - Red man syndrome [Recovered/Resolved]
  - Dermatitis bullous [Recovered/Resolved]
